FAERS Safety Report 13309552 (Version 1)
Quarter: 2017Q1

REPORT INFORMATION
  Report Type: Spontaneous
  Country: CA (occurrence: CA)
  Receive Date: 20170309
  Receipt Date: 20170309
  Transmission Date: 20170428
  Serious: Yes (Other)
  Sender: FDA-Public Use
  Company Number: CA-BRACCO-001300

PATIENT
  Age: 45 Year
  Sex: Female

DRUGS (3)
  1. HYOSCINE BUTYLBROMIDE [Suspect]
     Active Substance: BUTYLSCOPOLAMINE
     Indication: COMPUTERISED TOMOGRAM
  2. ISOVUE 300 [Suspect]
     Active Substance: IOPAMIDOL
     Indication: COMPUTERISED TOMOGRAM
     Route: 042
  3. HYOSCINE [Concomitant]
     Active Substance: SCOPOLAMINE

REACTIONS (3)
  - Injection related reaction [Unknown]
  - Tongue pruritus [Unknown]
  - Oral pruritus [Unknown]
